FAERS Safety Report 5094354-3 (Version None)
Quarter: 2006Q3

REPORT INFORMATION
  Report Type: 
  Country: None (occurrence: None)
  Receive Date: 20060731
  Receipt Date: 20060424
  Transmission Date: 20061208
  Serious: No
  Sender: FDA-Public Use
  Company Number: 2006PV012625

PATIENT
  Age: 61 Year
  Sex: Male
  Weight: 90.7194 kg

DRUGS (5)
  1. BYETTA [Suspect]
     Indication: DIABETES MELLITUS NON-INSULIN-DEPENDENT
     Dosage: 10 MCG;BID;SC, SEE IMAGE
     Route: 058
     Dates: start: 20060101, end: 20060201
  2. BYETTA [Suspect]
     Indication: DIABETES MELLITUS NON-INSULIN-DEPENDENT
     Dosage: 10 MCG;BID;SC, SEE IMAGE
     Route: 058
     Dates: start: 20060201
  3. GLIPIZIDE [Concomitant]
  4. AVANDIA [Concomitant]
  5. GLUCOPHAGE [Concomitant]

REACTIONS (5)
  - BLOOD GLUCOSE FLUCTUATION [None]
  - BLOOD GLUCOSE INCREASED [None]
  - DYSPEPSIA [None]
  - STRESS [None]
  - WEIGHT DECREASED [None]
